FAERS Safety Report 20375777 (Version 2)
Quarter: 2022Q1

REPORT INFORMATION
  Report Type: Spontaneous
  Country: US (occurrence: None)
  Receive Date: 20220125
  Receipt Date: 20220126
  Transmission Date: 20220424
  Serious: No
  Sender: FDA-Public Use
  Company Number: 2022A035812

PATIENT
  Sex: Female

DRUGS (3)
  1. EVUSHELD [Suspect]
     Active Substance: CILGAVIMAB\TIXAGEVIMAB
     Indication: Allergy to vaccine
     Route: 030
     Dates: start: 20220119
  2. BUDESONIDE [Suspect]
     Active Substance: BUDESONIDE
     Dosage: 1 MCG/ 3 ML
     Route: 055
     Dates: start: 2020
  3. LIPITOR [Concomitant]
     Active Substance: ATORVASTATIN CALCIUM
     Indication: Atrioventricular block

REACTIONS (5)
  - Therapeutic response unexpected [Unknown]
  - Dyspnoea [Unknown]
  - Fatigue [Unknown]
  - Wheezing [Unknown]
  - Product use issue [Unknown]
